FAERS Safety Report 5489630-6 (Version None)
Quarter: 2007Q4

REPORT INFORMATION
  Report Type: 
  Country: None (occurrence: None)
  Receive Date: 20071018
  Receipt Date: 20071016
  Transmission Date: 20080405
  Serious: Yes (Other)
  Sender: FDA-Public Use
  Company Number: A0681450A

PATIENT
  Age: 8 Year
  Sex: Male
  Weight: 35.9 kg

DRUGS (3)
  1. LAMICTAL [Suspect]
     Indication: BIPOLAR DISORDER
     Dosage: 50MG VARIABLE DOSE
     Route: 048
     Dates: start: 20051028, end: 20070101
  2. RISPERDAL [Concomitant]
     Dosage: .5MG TWICE PER DAY
     Dates: start: 20031201
  3. TENEX [Concomitant]
     Dosage: 1MG TWICE PER DAY

REACTIONS (6)
  - ABNORMAL BEHAVIOUR [None]
  - AGGRESSION [None]
  - ANTISOCIAL BEHAVIOUR [None]
  - BLOOD CHOLESTEROL INCREASED [None]
  - IRRITABILITY [None]
  - PERSONALITY CHANGE [None]
